FAERS Safety Report 24231439 (Version 1)
Quarter: 2024Q3

REPORT INFORMATION
  Report Type: Spontaneous
  Country: RU (occurrence: RU)
  Receive Date: 20240821
  Receipt Date: 20240821
  Transmission Date: 20241016
  Serious: Yes (Other)
  Sender: SERVIER
  Company Number: RU-SERVIER-S24009941

PATIENT

DRUGS (2)
  1. ONCASPAR [Suspect]
     Active Substance: PEGASPARGASE
     Indication: Acute lymphocytic leukaemia
     Dosage: 1000 IU, UNK
     Route: 065
     Dates: start: 202406, end: 202406
  2. ONCASPAR [Suspect]
     Active Substance: PEGASPARGASE
     Dosage: 1000 IU, UNK
     Route: 065
     Dates: start: 20240722, end: 20240722

REACTIONS (2)
  - Cardiac arrest [Recovered/Resolved]
  - Anaphylactic shock [Recovered/Resolved]

NARRATIVE: CASE EVENT DATE: 20240722
